FAERS Safety Report 12715047 (Version 1)
Quarter: 2016Q3

REPORT INFORMATION
  Report Type: Spontaneous
  Country: US (occurrence: US)
  Receive Date: 20160905
  Receipt Date: 20160905
  Transmission Date: 20161109
  Serious: No
  Sender: FDA-Public Use
  Company Number: US-JNJFOC-20160222543

PATIENT
  Age: 52 Year
  Sex: Male
  Weight: 118.39 kg

DRUGS (2)
  1. LEVAQUIN [Suspect]
     Active Substance: LEVOFLOXACIN
     Indication: FURUNCLE
     Route: 042
     Dates: start: 201001
  2. LEVAQUIN [Suspect]
     Active Substance: LEVOFLOXACIN
     Indication: FURUNCLE
     Route: 048
     Dates: start: 201001

REACTIONS (2)
  - Neuropathy peripheral [Not Recovered/Not Resolved]
  - Visual impairment [Not Recovered/Not Resolved]

NARRATIVE: CASE EVENT DATE: 201001
